FAERS Safety Report 7410675-0 (Version None)
Quarter: 2011Q2

REPORT INFORMATION
  Report Type: 
  Country: None (occurrence: None)
  Receive Date: 20110405
  Receipt Date: 20110321
  Transmission Date: 20111010
  Serious: Yes (Hospitalization)
  Sender: FDA-Public Use
  Company Number: 1000019635

PATIENT
  Age: 38 Year
  Sex: Female

DRUGS (2)
  1. ESCITALOPRAM OXALATE [Suspect]
     Indication: DEPRESSION
     Dosage: 5 MG (5 MG, 1 IN 1 D), ORAL
     Route: 048
     Dates: start: 20110320, end: 20110320
  2. EUTIROX (LEVOTHYROXINE) (LEVOTHYROXINE) [Concomitant]

REACTIONS (6)
  - MALAISE [None]
  - DRY MOUTH [None]
  - FORMICATION [None]
  - SKIN BURNING SENSATION [None]
  - NAUSEA [None]
  - SINUS TACHYCARDIA [None]
